FAERS Safety Report 5889298-0 (Version None)
Quarter: 2008Q3

REPORT INFORMATION
  Report Type: 
  Country: None (occurrence: None)
  Receive Date: 20080919
  Receipt Date: 20080909
  Transmission Date: 20090109
  Serious: Yes (Hospitalization)
  Sender: FDA-Public Use
  Company Number: US-WATSON-2008-05519

PATIENT
  Age: 64 Year
  Sex: Female

DRUGS (4)
  1. MYSOLINE (WATSON LABORATORIES) [Suspect]
     Indication: NERVOUS SYSTEM DISORDER
     Dosage: 250 MG, 5X/DAY
     Route: 048
     Dates: start: 20080826
  2. MYSOLINE (WATSON LABORATORIES) [Suspect]
     Indication: CONVULSION
     Dosage: 250 MG, 5X/DAY
     Route: 048
     Dates: start: 20080701
  3. MYSOLINE (WATSON LABORATORIES) [Suspect]
     Indication: CARDIOVASCULAR DISORDER
  4. MYSOLINE (WATSON LABORATORIES) [Suspect]
     Indication: EYE DISORDER

REACTIONS (4)
  - CARDIOVASCULAR DISORDER [None]
  - DRUG INEFFECTIVE [None]
  - FLUID RETENTION [None]
  - VISION BLURRED [None]
